FAERS Safety Report 9671471 (Version 5)
Quarter: 2014Q1

REPORT INFORMATION
  Report Type: Report from Study
  Country: CA (occurrence: CA)
  Receive Date: 20131106
  Receipt Date: 20140116
  Transmission Date: 20141002
  Serious: Yes (Hospitalization)
  Sender: FDA-Public Use
  Company Number: CA-ABBVIE-13P-028-1156636-00

PATIENT
  Age: 61 Year
  Sex: Male
  Weight: 87 kg

DRUGS (18)
  1. HUMIRA [Suspect]
     Indication: CROHN^S DISEASE
     Dosage: BASELINE
     Route: 058
     Dates: start: 20090330, end: 20090330
  2. HUMIRA [Suspect]
     Dosage: WEEK 2
     Route: 058
  3. HUMIRA [Suspect]
     Route: 058
     Dates: end: 20120828
  4. HUMIRA [Suspect]
     Route: 058
     Dates: start: 20121001, end: 20130903
  5. MERCAPTOPURINE [Concomitant]
     Indication: CROHN^S DISEASE
     Dates: start: 20070823
  6. MERCAPTOPURINE [Concomitant]
     Dates: start: 200709
  7. MERCAPTOPURINE [Concomitant]
     Dates: start: 200710
  8. MERCAPTOPURINE [Concomitant]
     Dates: start: 200808
  9. MERCAPTOPURINE [Concomitant]
     Dates: start: 200810
  10. CALCIUM [Concomitant]
     Indication: OSTEOPENIA
     Dates: start: 2007
  11. PREDNISONE [Concomitant]
     Indication: CROHN^S DISEASE
     Dates: start: 20090212, end: 20090218
  12. PREDNISONE [Concomitant]
     Indication: CROHN^S DISEASE
     Dates: start: 20090219, end: 20090225
  13. PREDNISONE [Concomitant]
     Dates: start: 20090226, end: 20090304
  14. PREDNISONE [Concomitant]
     Dates: start: 20090305, end: 20090311
  15. PREDNISONE [Concomitant]
     Dates: start: 20090312, end: 20090318
  16. PREDNISONE [Concomitant]
     Dates: start: 20090319, end: 20090325
  17. PREDNISONE [Concomitant]
     Dates: start: 20090326, end: 20090401
  18. PREDNISONE [Concomitant]
     Dates: start: 20090402, end: 20090409

REACTIONS (1)
  - Non-Hodgkin^s lymphoma [Not Recovered/Not Resolved]
